FAERS Safety Report 8479780-4 (Version None)
Quarter: 2012Q2

REPORT INFORMATION
  Report Type: 
  Country: None (occurrence: None)
  Receive Date: 20120629
  Receipt Date: 20120621
  Transmission Date: 20120825
  Serious: Yes (Other)
  Sender: FDA-Public Use
  Company Number: US-ABBOTT-12P-163-0948905-00

PATIENT
  Sex: Female
  Weight: 84.444 kg

DRUGS (3)
  1. HUMIRA [Suspect]
     Indication: COLITIS ULCERATIVE
     Route: 058
     Dates: start: 20110501, end: 20120620
  2. LOESTRIN 1.5/30 [Concomitant]
     Indication: CONTRACEPTION
  3. LEVOCETIRIZINE DIHYDROCHLORIDE [Concomitant]
     Indication: HYPERSENSITIVITY

REACTIONS (3)
  - OFF LABEL USE [None]
  - COLITIS ULCERATIVE [None]
  - DRUG INEFFECTIVE [None]
